FAERS Safety Report 5215272-3 (Version None)
Quarter: 2006Q4

REPORT INFORMATION
  Report Type: 
  Country: None (occurrence: None)
  Receive Date: 20061122
  Receipt Date: 20060607
  Transmission Date: 20070319
  Serious: Yes (Other)
  Sender: FDA-Public Use
  Company Number: HQWYE026108JUN06

PATIENT
  Age: 62 Year
  Sex: Female
  Weight: 79 kg

DRUGS (2)
  1. PREMARIN [Suspect]
     Indication: VULVOVAGINAL DRYNESS
     Dosage: 1G 1X PER 1 DAY, VAGINAL
     Route: 067
     Dates: start: 20060531, end: 20060604
  2. KLONOPIN [Concomitant]

REACTIONS (1)
  - FAECES DISCOLOURED [None]
